FAERS Safety Report 18636365 (Version 1)
Quarter: 2020Q4

REPORT INFORMATION
  Report Type: Spontaneous
  Country: IN (occurrence: IN)
  Receive Date: 20201218
  Receipt Date: 20201218
  Transmission Date: 20210114
  Serious: Yes (Hospitalization)
  Sender: FDA-Public Use
  Company Number: IN-LUPIN PHARMACEUTICALS INC.-2020-10403

PATIENT
  Age: 20 Year
  Sex: Male

DRUGS (1)
  1. PHENYTOIN SODIUM. [Suspect]
     Active Substance: PHENYTOIN SODIUM
     Indication: GENERALISED TONIC-CLONIC SEIZURE
     Dosage: 100 MILLIGRAM, BID
     Route: 065

REACTIONS (2)
  - Gingival hypertrophy [Recovering/Resolving]
  - Toxicity to various agents [Unknown]
